FAERS Safety Report 4845754-5 (Version None)
Quarter: 2005Q4

REPORT INFORMATION
  Report Type: 
  Country: None (occurrence: None)
  Receive Date: 20051205
  Receipt Date: 20051205
  Transmission Date: 20060501
  Serious: No
  Sender: FDA-Public Use
  Company Number: None

PATIENT
  Age: 49 Year
  Sex: Male
  Weight: 113.3993 kg

DRUGS (2)
  1. WARFARIN (GENERIC) [Suspect]
     Indication: COAGULOPATHY
     Dosage: 2.5 MG, 10MG, PO ALTERNATING DAILY
     Route: 048
     Dates: start: 20010601
  2. WARFARIN (GENERIC) [Suspect]
     Indication: PROTEIN S DEFICIENCY
     Dosage: 2.5 MG, 10MG, PO ALTERNATING DAILY
     Route: 048
     Dates: start: 20010601

REACTIONS (2)
  - THERAPEUTIC RESPONSE UNEXPECTED WITH DRUG SUBSTITUTION [None]
  - THERAPY NON-RESPONDER [None]
